FAERS Safety Report 6282197-4 (Version None)
Quarter: 2009Q3

REPORT INFORMATION
  Report Type: 
  Country: None (occurrence: None)
  Receive Date: 20090724
  Receipt Date: 20090717
  Transmission Date: 20100115
  Serious: Yes (Life-Threatening, Hospitalization, Other)
  Sender: FDA-Public Use
  Company Number: JP-WYE-H08117609

PATIENT
  Sex: Female

DRUGS (6)
  1. ZOSYN [Suspect]
     Indication: POSTOPERATIVE WOUND INFECTION
     Route: 041
     Dates: start: 20090102, end: 20090103
  2. MEROPEN [Suspect]
     Dosage: UNKNOWN
     Route: 041
     Dates: start: 20090103
  3. THYRADIN S [Concomitant]
     Indication: THYROID CANCER
     Route: 048
  4. CALCIUM LACTATE [Concomitant]
     Indication: THYROID CANCER
     Route: 048
  5. BIOFERMIN R [Concomitant]
     Indication: DIARRHOEA
     Route: 048
     Dates: start: 20081208
  6. ALFAROL [Concomitant]
     Indication: THYROID CANCER
     Route: 048
     Dates: start: 20081210

REACTIONS (4)
  - CONVULSION [None]
  - DECUBITUS ULCER [None]
  - STAPHYLOCOCCAL BACTERAEMIA [None]
  - TOXIC EPIDERMAL NECROLYSIS [None]
